FAERS Safety Report 5855662-9 (Version None)
Quarter: 2008Q3

REPORT INFORMATION
  Report Type: 
  Country: None (occurrence: None)
  Receive Date: 20080823
  Receipt Date: 20080815
  Transmission Date: 20090109
  Serious: Yes (Other)
  Sender: FDA-Public Use
  Company Number: US-ELI_LILLY_AND_COMPANY-US200808003108

PATIENT
  Sex: Female

DRUGS (2)
  1. HUMALOG [Suspect]
     Dosage: 35 U, EACH MORNING
     Dates: start: 20020101
  2. HUMALOG [Suspect]
     Dosage: 35 U, EACH EVENING

REACTIONS (3)
  - BLOOD GLUCOSE INCREASED [None]
  - BREAST CANCER [None]
  - DRUG INEFFECTIVE [None]
